FAERS Safety Report 8874802 (Version 1)
Quarter: 2012Q4

REPORT INFORMATION
  Report Type: Report from Study
  Country: DE (occurrence: JP)
  Receive Date: 20121030
  Receipt Date: 20121030
  Transmission Date: 20130627
  Serious: Yes (Other)
  Sender: FDA-Public Use
  Company Number: JP-BRISTOL-MYERS SQUIBB COMPANY-17054628

PATIENT
  Age: 61 Year
  Sex: Male
  Weight: 66 kg

DRUGS (3)
  1. ERBITUX SOLN FOR INF 5MG/ML [Suspect]
     Indication: COLON CANCER
     Dosage: 57.1429 mg/m2;reduced to 250mg/m2 on 07May09 (including skipped week) Last dose: 10Aug2009 IV drip
     Route: 041
     Dates: start: 20090430
  2. POLARAMINE [Concomitant]
     Indication: PREMEDICATION
     Route: 042
  3. SOLU-CORTEF [Concomitant]
     Indication: PREMEDICATION
     Route: 042
     Dates: start: 20090430

REACTIONS (4)
  - Gastrointestinal haemorrhage [Recovering/Resolving]
  - Postoperative wound complication [Recovered/Resolved]
  - Acne [Recovering/Resolving]
  - Laceration [Recovered/Resolved]
